FAERS Safety Report 7580294-4 (Version None)
Quarter: 2011Q2

REPORT INFORMATION
  Report Type: 
  Country: None (occurrence: None)
  Receive Date: 20110629
  Receipt Date: 20110620
  Transmission Date: 20111010
  Serious: Yes (Hospitalization, Other)
  Sender: FDA-Public Use
  Company Number: US-ASTRAZENECA-2011SE26656

PATIENT
  Age: 78 Year
  Sex: Female

DRUGS (4)
  1. OTHER OTC [Concomitant]
  2. NEXIUM [Suspect]
     Indication: GASTROOESOPHAGEAL REFLUX DISEASE
     Route: 048
  3. IBUPROFEN [Concomitant]
  4. VITAMIN TAB [Concomitant]

REACTIONS (3)
  - COLECTOMY [None]
  - COLON ADENOMA [None]
  - COLON DYSPLASIA [None]
